FAERS Safety Report 14465967 (Version 3)
Quarter: 2018Q3

REPORT INFORMATION
  Report Type: Spontaneous
  Country: JP (occurrence: JP)
  Receive Date: 20180131
  Receipt Date: 20180921
  Transmission Date: 20181010
  Serious: Yes (Death)
  Sender: FDA-Public Use
  Company Number: JP-ACTELION-A-CH2018-166624

PATIENT
  Age: 74 Year
  Sex: Female
  Weight: 42 kg

DRUGS (15)
  1. ADEMPAS [Concomitant]
     Active Substance: RIOCIGUAT
     Indication: PULMONARY ARTERIAL HYPERTENSION
     Dosage: 4.5 MG, QD
  2. FUROSEMIDE. [Concomitant]
     Active Substance: FUROSEMIDE
     Dosage: 40 MG, QD
     Dates: start: 20170122, end: 20170801
  3. UPTRAVI [Suspect]
     Active Substance: SELEXIPAG
     Indication: PULMONARY ARTERIAL HYPERTENSION
     Dosage: 0.2 MG, BID
     Route: 048
     Dates: start: 20170119, end: 20170123
  4. OPSUMIT [Concomitant]
     Active Substance: MACITENTAN
     Indication: PULMONARY ARTERIAL HYPERTENSION
     Dosage: 10 MG, QD
     Route: 048
  5. UPTRAVI [Suspect]
     Active Substance: SELEXIPAG
     Dosage: 0.4 MG, BID
     Route: 048
     Dates: start: 20170124, end: 20170129
  6. SPIRONOLACTONE. [Concomitant]
     Active Substance: SPIRONOLACTONE
     Dosage: 25 MG, QD
  7. XARELTO [Concomitant]
     Active Substance: RIVAROXABAN
     Dosage: 10 MG, QD
     Dates: start: 20170119, end: 20170501
  8. TAKECAB [Concomitant]
     Active Substance: VONOPRAZAN FUMURATE
     Dosage: 10 MG, QD
  9. UPTRAVI [Suspect]
     Active Substance: SELEXIPAG
     Dosage: 1.2 MG, BID
     Route: 048
     Dates: start: 20170130, end: 20170214
  10. CARBOCISTEINE [Concomitant]
     Active Substance: CARBOCYSTEINE
     Indication: BRONCHITIS
     Dosage: 750 MG, QD
     Dates: end: 20170122
  11. DIART [Concomitant]
     Active Substance: AZOSEMIDE
     Dosage: 30 MG, QD
     Dates: end: 20170122
  12. FUROSEMIDE. [Concomitant]
     Active Substance: FUROSEMIDE
     Dosage: 20 MG, QD
     Dates: start: 20170802
  13. UPTRAVI [Suspect]
     Active Substance: SELEXIPAG
     Dosage: 0.8 MG, BID
     Route: 048
     Dates: start: 20170215, end: 20180118
  14. CRESTOR [Concomitant]
     Active Substance: ROSUVASTATIN CALCIUM
     Dosage: 5 MG, QD
  15. FLUITRAN [Concomitant]
     Active Substance: TRICHLORMETHIAZIDE
     Dosage: 2 MG, QD
     Dates: start: 20170122

REACTIONS (2)
  - Hypotension [Recovering/Resolving]
  - Marasmus [Fatal]

NARRATIVE: CASE EVENT DATE: 20170119
